FAERS Safety Report 7631805-1 (Version None)
Quarter: 2011Q3

REPORT INFORMATION
  Report Type: 
  Country: None (occurrence: None)
  Receive Date: 20110725
  Receipt Date: 20110404
  Transmission Date: 20111222
  Serious: Yes (Hospitalization)
  Sender: FDA-Public Use
  Company Number: US-BRISTOL-MYERS SQUIBB COMPANY-15651631

PATIENT
  Age: 63 Year
  Sex: Male
  Weight: 110 kg

DRUGS (12)
  1. LOVENOX [Suspect]
     Route: 065
     Dates: start: 20050101
  2. ZETIA [Concomitant]
     Dosage: -UNK
     Dates: start: 20050101
  3. ASPIRIN [Suspect]
  4. COREG [Concomitant]
     Dosage: -UNK
     Dates: start: 20050101
  5. FUROSEMIDE [Concomitant]
  6. KLOR-CON [Concomitant]
  7. DIAMICRON [Concomitant]
     Dosage: DIAMICRON MR. ONG
     Dates: start: 20050101
  8. PLAVIX [Suspect]
     Indication: ANTIPLATELET THERAPY
     Dosage: TIME OF ONSET: 2DAYS
     Route: 048
     Dates: start: 20050501, end: 20050517
  9. BENAZEPRIL HYDROCHLORIDE [Concomitant]
     Dosage: -UNK
     Dates: start: 20050101
  10. OMEPRAZOLE [Concomitant]
     Dates: start: 20050511, end: 20050530
  11. COUMADIN [Suspect]
     Route: 065
     Dates: start: 20050101
  12. DIGOXIN [Concomitant]
     Dosage: -UNK
     Dates: start: 20050101

REACTIONS (4)
  - ABDOMINAL DISCOMFORT [None]
  - HAEMORRHAGE [None]
  - HAEMATOCHEZIA [None]
  - BLOOD URINE PRESENT [None]
